FAERS Safety Report 8335256-6 (Version None)
Quarter: 2012Q2

REPORT INFORMATION
  Report Type: 
  Country: None (occurrence: None)
  Receive Date: 20120503
  Receipt Date: 20120430
  Transmission Date: 20120825
  Serious: Yes (Other)
  Sender: FDA-Public Use
  Company Number: BR-ROCHE-1064403

PATIENT
  Sex: Male

DRUGS (1)
  1. ISOTRETINOIN [Suspect]
     Indication: PRODUCT USED FOR UNKNOWN INDICATION
     Route: 065

REACTIONS (5)
  - PANCREATIC DISORDER [None]
  - DIABETES MELLITUS [None]
  - HEPATIC CIRRHOSIS [None]
  - PANCREATITIS [None]
  - URINARY TRACT INFECTION [None]
